FAERS Safety Report 8870384 (Version 1)
Quarter: 2012Q4

REPORT INFORMATION
  Report Type: 
  Country: US (occurrence: US)
  Receive Date: 20121026
  Receipt Date: 20121026
  Transmission Date: 20130627
  Serious: No
  Sender: FDA-Public Use
  Company Number: US-AMGEN-USASP2012047027

PATIENT
  Sex: Male

DRUGS (6)
  1. ENBREL [Suspect]
     Indication: PRODUCT USED FOR UNKNOWN INDICATION
     Dosage: 50 mg/ml, qwk
     Route: 058
  2. ONGLYZA [Concomitant]
     Dosage: 2.5 mg, UNK
  3. METHOTREXATE [Concomitant]
     Dosage: 2.5 mg, UNK
  4. METFORMIN [Concomitant]
     Dosage: 500 mg, UNK
  5. GLIMEPIRIDE [Concomitant]
     Dosage: 1 mg, UNK
  6. LEVEMIR [Concomitant]
     Dosage: UNK

REACTIONS (2)
  - Injection site pruritus [Unknown]
  - Injection site urticaria [Unknown]
